FAERS Safety Report 24158097 (Version 1)
Quarter: 2024Q3

REPORT INFORMATION
  Report Type: Spontaneous
  Country: FR (occurrence: FR)
  Receive Date: 20240731
  Receipt Date: 20240731
  Transmission Date: 20241017
  Serious: Yes (Hospitalization)
  Sender: TEVA
  Company Number: None

PATIENT
  Age: 36 Year
  Sex: Female
  Weight: 65 kg

DRUGS (4)
  1. PACLITAXEL [Suspect]
     Active Substance: PACLITAXEL
     Indication: Breast cancer
     Route: 042
     Dates: start: 20240620, end: 20240620
  2. PEGFILGRASTIM [Suspect]
     Active Substance: PEGFILGRASTIM
     Indication: Blood disorder prophylaxis
     Dosage: PEGFILGRASTIM ((BACTERIE/ESCHERICHIA COLI))
     Route: 058
     Dates: start: 20240622, end: 20240622
  3. CARBOPLATIN [Suspect]
     Active Substance: CARBOPLATIN
     Indication: Breast cancer
     Route: 042
     Dates: start: 20240620, end: 20240620
  4. PEMBROLIZUMAB [Suspect]
     Active Substance: PEMBROLIZUMAB
     Indication: Breast cancer
     Route: 042
     Dates: start: 20240620, end: 20240620

REACTIONS (1)
  - Rash [Recovering/Resolving]

NARRATIVE: CASE EVENT DATE: 20240628
